FAERS Safety Report 8178062-8 (Version None)
Quarter: 2012Q1

REPORT INFORMATION
  Report Type: 
  Country: None (occurrence: None)
  Receive Date: 20120301
  Receipt Date: 20120227
  Transmission Date: 20120608
  Serious: Yes (Death, Hospitalization)
  Sender: FDA-Public Use
  Company Number: US-US-EMD SERONO, INC.-7107026

PATIENT
  Sex: Male

DRUGS (1)
  1. REBIF [Suspect]
     Indication: PRODUCT USED FOR UNKNOWN INDICATION
     Route: 058
     Dates: start: 20111017

REACTIONS (7)
  - PULMONARY EMBOLISM [None]
  - PNEUMONIA [None]
  - THROMBOSIS [None]
  - FOOT FRACTURE [None]
  - FALL [None]
  - INTRACARDIAC THROMBUS [None]
  - CONTUSION [None]
